FAERS Safety Report 16012410 (Version 1)
Quarter: 2019Q1

REPORT INFORMATION
  Report Type: Other
  Country: CA (occurrence: CA)
  Receive Date: 20190227
  Receipt Date: 20190227
  Transmission Date: 20190418
  Serious: Yes (Death, Other)
  Sender: FDA-Public Use
  Company Number: CA-PFIZER INC-2019081357

PATIENT
  Age: 84 Year
  Sex: Male

DRUGS (7)
  1. CUBICIN [Suspect]
     Active Substance: DAPTOMYCIN
     Indication: ENDOCARDITIS ENTEROCOCCAL
     Dosage: UNK
  2. CUBICIN [Suspect]
     Active Substance: DAPTOMYCIN
     Indication: DEVICE RELATED INFECTION
     Dosage: 8 MG/KG, 1X/DAY
     Route: 042
  3. CEFTRIAXONE SODIUM. [Suspect]
     Active Substance: CEFTRIAXONE SODIUM
     Indication: DEVICE RELATED INFECTION
     Dosage: UNK
  4. CEFTRIAXONE SODIUM. [Suspect]
     Active Substance: CEFTRIAXONE SODIUM
     Indication: ENDOCARDITIS ENTEROCOCCAL
     Dosage: 2 G, 2X/DAY
     Route: 042
  5. CUBICIN [Suspect]
     Active Substance: DAPTOMYCIN
     Dosage: UNK
  6. CUBICIN [Suspect]
     Active Substance: DAPTOMYCIN
     Dosage: 8 MG/KG, 1X/DAY
     Route: 042
  7. VANCOMYCIN [Concomitant]
     Active Substance: VANCOMYCIN
     Dosage: UNK

REACTIONS (7)
  - Endocarditis [Fatal]
  - Drug resistance [Fatal]
  - Treatment failure [Fatal]
  - Off label use [Fatal]
  - Antimicrobial susceptibility test resistant [Fatal]
  - Drug hypersensitivity [Fatal]
  - Cardiac valve replacement complication [Fatal]
